FAERS Safety Report 19249633 (Version 1)
Quarter: 2021Q2

REPORT INFORMATION
  Report Type: Report from Study
  Country: US (occurrence: US)
  Receive Date: 20210513
  Receipt Date: 20210513
  Transmission Date: 20210717
  Serious: Yes (Hospitalization, Other)
  Sender: FDA-Public Use
  Company Number: US-ROCHE-2520885

PATIENT
  Age: 64 Year
  Sex: Male
  Weight: 99.1 kg

DRUGS (4)
  1. ZOFRAN [Concomitant]
     Active Substance: ONDANSETRON HYDROCHLORIDE
  2. ATEZOLIZUMAB. [Suspect]
     Active Substance: ATEZOLIZUMAB
     Indication: MESOTHELIOMA MALIGNANT
     Dosage: DATE OF MOST RECENT DOSE OF ATEZOLIZUMAB OF 1200 MG  PRIOR TO ADVERSE EVENT ONSET: 23/DEC/2019, 07/A
     Route: 042
     Dates: start: 20191023
  3. CISPLATIN. [Suspect]
     Active Substance: CISPLATIN
     Indication: MESOTHELIOMA MALIGNANT
     Dosage: DATE OF MOST RECENT DOSE OF CISPLATIN OF 156 MG  PRIOR TO ADVERSE EVENT ONSET: 23/DEC/2019?DOSE REC
     Route: 042
     Dates: start: 20191023
  4. PEMETREXED DISODIUM [Suspect]
     Active Substance: PEMETREXED DISODIUM
     Indication: MESOTHELIOMA MALIGNANT
     Dosage: DATE OF MOST RECENT DOSE OF PREMETREXED DISODIUM OF 1040 MG  PRIOR TO ADVERSE EVENT ONSET: 23/DEC/20
     Route: 042
     Dates: start: 20191023

REACTIONS (4)
  - Abdominal pain [Unknown]
  - Constipation [Recovered/Resolved]
  - Hyperthyroidism [Unknown]
  - Hypotension [Unknown]

NARRATIVE: CASE EVENT DATE: 20200103
